FAERS Safety Report 17000872 (Version 3)
Quarter: 2019Q4

REPORT INFORMATION
  Report Type: Report from Study
  Country: US (occurrence: US)
  Receive Date: 20191106
  Receipt Date: 20191206
  Transmission Date: 20200122
  Serious: Yes (Hospitalization)
  Sender: FDA-Public Use
  Company Number: US-EISAI MEDICAL RESEARCH-EC-2019-064726

PATIENT
  Age: 75 Year
  Sex: Male
  Weight: 74.84 kg

DRUGS (14)
  1. NEXAVAR [Concomitant]
     Active Substance: SORAFENIB
  2. LENVIMA [Suspect]
     Active Substance: LENVATINIB
     Indication: HEPATOCELLULAR CARCINOMA
     Route: 048
     Dates: start: 20191023, end: 201910
  3. LENVIMA [Suspect]
     Active Substance: LENVATINIB
     Route: 048
     Dates: start: 20191104, end: 201911
  4. SPIRONOLACTONE. [Concomitant]
     Active Substance: SPIRONOLACTONE
  5. TRAMADOL. [Concomitant]
     Active Substance: TRAMADOL
  6. BUMETANIDE. [Concomitant]
     Active Substance: BUMETANIDE
  7. ONDANSETRON [Concomitant]
     Active Substance: ONDANSETRON
  8. CHOLESTYRAMINE. [Concomitant]
     Active Substance: CHOLESTYRAMINE
  9. PILOCARPINE. [Concomitant]
     Active Substance: PILOCARPINE
     Route: 048
  10. ESOMEPRAZOLE. [Concomitant]
     Active Substance: ESOMEPRAZOLE MAGNESIUM
  11. HYDROCORTISONE. [Concomitant]
     Active Substance: HYDROCORTISONE
  12. RAVICTI [Concomitant]
     Active Substance: GLYCEROL PHENYLBUTYRATE
  13. LENVIMA [Suspect]
     Active Substance: LENVATINIB
     Route: 048
     Dates: start: 201910, end: 20191029
  14. LABETALOL [Concomitant]
     Active Substance: LABETALOL\LABETALOL HYDROCHLORIDE

REACTIONS (6)
  - Blood pressure fluctuation [Unknown]
  - Hypokalaemia [Unknown]
  - Thrombosis [Unknown]
  - Acute kidney injury [Unknown]
  - Nausea [Unknown]
  - Malignant neoplasm progression [Not Recovered/Not Resolved]

NARRATIVE: CASE EVENT DATE: 201910
